FAERS Safety Report 9499706 (Version 1)
Quarter: 2013Q3

REPORT INFORMATION
  Report Type: Spontaneous
  Country: US (occurrence: None)
  Receive Date: 20130903
  Receipt Date: 20130903
  Transmission Date: 20140515
  Serious: Yes (Disabling)
  Sender: FDA-Public Use
  Company Number: None

PATIENT
  Age: 75 Year
  Sex: Male
  Weight: 90.72 kg

DRUGS (1)
  1. LEVOFLOXIN [Suspect]
     Indication: BIOPSY
     Dosage: 500 MG DAILY ORAL
     Route: 048
     Dates: start: 20130718

REACTIONS (1)
  - Pain in extremity [None]
